FAERS Safety Report 4867027-7 (Version None)
Quarter: 2005Q4

REPORT INFORMATION
  Report Type: 
  Country: None (occurrence: None)
  Receive Date: 20051222
  Receipt Date: 20051210
  Transmission Date: 20060501
  Serious: Yes (Other)
  Sender: FDA-Public Use
  Company Number: JP-2005-023069

PATIENT
  Age: 24 Year
  Sex: Male

DRUGS (7)
  1. BETAFERON (INTERFERON BETA - 1B) INJECTION, 250?G [Suspect]
     Indication: RELAPSING-REMITTING MULTIPLE SCLEROSIS
     Dosage: SEE IMAGE
     Route: 058
     Dates: start: 20040621, end: 20040821
  2. BETAFERON (INTERFERON BETA - 1B) INJECTION, 250?G [Suspect]
     Indication: RELAPSING-REMITTING MULTIPLE SCLEROSIS
     Dosage: SEE IMAGE
     Route: 058
     Dates: start: 20040823, end: 20040917
  3. BETAFERON (INTERFERON BETA - 1B) INJECTION, 250?G [Suspect]
     Indication: RELAPSING-REMITTING MULTIPLE SCLEROSIS
     Dosage: SEE IMAGE
     Route: 058
     Dates: start: 20050111, end: 20050303
  4. METHYCOBAL (MECOBALAMIN) TABLET [Concomitant]
  5. LIPITOR [Concomitant]
  6. GASTER D (FAMOTIDINE) TABLET [Concomitant]
  7. SOLU-MEDROL [Concomitant]

REACTIONS (2)
  - AUTOIMMUNE HEPATITIS [None]
  - MULTIPLE SCLEROSIS RELAPSE [None]
